FAERS Safety Report 18549136 (Version 1)
Quarter: 2020Q4

REPORT INFORMATION
  Report Type: Spontaneous
  Country: DE (occurrence: DE)
  Receive Date: 20201126
  Receipt Date: 20201126
  Transmission Date: 20210114
  Serious: Yes (Other)
  Sender: FDA-Public Use
  Company Number: DE-ACCORD-209129

PATIENT
  Age: 64 Year
  Sex: Male

DRUGS (7)
  1. PEMETREXED DISODIUM [Suspect]
     Active Substance: PEMETREXED DISODIUM
     Indication: PRODUCT USED FOR UNKNOWN INDICATION
     Dosage: 80% OF DOSE 1
     Route: 042
  2. PEMETREXED. [Suspect]
     Active Substance: PEMETREXED
     Indication: LUNG ADENOCARCINOMA STAGE IV
     Dosage: 500MG/M2 DAY 1, REPEAT ON DAY 2
     Route: 042
     Dates: start: 201908
  3. PEMBROLIZUMAB. [Suspect]
     Active Substance: PEMBROLIZUMAB
     Indication: PRODUCT USED FOR UNKNOWN INDICATION
     Dosage: MAINTENANCE THERAPY COMBINED WITH PEMETREXED 80%
     Dates: start: 202001
  4. CARBOPLATIN. [Suspect]
     Active Substance: CARBOPLATIN
     Indication: PRODUCT USED FOR UNKNOWN INDICATION
     Dosage: 80% OF DOSE 1
     Route: 042
  5. PEMETREXED DISODIUM [Suspect]
     Active Substance: PEMETREXED DISODIUM
     Indication: PRODUCT USED FOR UNKNOWN INDICATION
     Dosage: 80%, MAINTENANCE THERAPY COMBINED WITH PEMBROLIZUMAB
     Route: 042
     Dates: start: 202001
  6. CARBOPLATIN. [Suspect]
     Active Substance: CARBOPLATIN
     Indication: LUNG ADENOCARCINOMA STAGE IV
     Dosage: AREA UNDER THE CURVE (AUC) 5 DAY1, REPEAT ON DAY 21
     Route: 042
     Dates: start: 201908
  7. PEMBROLIZUMAB. [Suspect]
     Active Substance: PEMBROLIZUMAB
     Indication: LUNG ADENOCARCINOMA STAGE IV
     Dosage: 200MG FIX DOSE, COMBINED 3-FOLD THERAPY
     Dates: start: 201908

REACTIONS (3)
  - Fatigue [Unknown]
  - Mucosal inflammation [Unknown]
  - Malignant neoplasm progression [Recovering/Resolving]

NARRATIVE: CASE EVENT DATE: 201910
